FAERS Safety Report 6542372-8 (Version None)
Quarter: 2010Q1

REPORT INFORMATION
  Report Type: 
  Country: None (occurrence: None)
  Receive Date: 20100119
  Receipt Date: 20100108
  Transmission Date: 20100710
  Serious: Yes (Other)
  Sender: FDA-Public Use
  Company Number: US-BAYER-200927522NA

PATIENT
  Age: 43 Year
  Sex: Male
  Weight: 74 kg

DRUGS (1)
  1. MAGNEVIST [Suspect]
     Indication: NUCLEAR MAGNETIC RESONANCE IMAGING
     Dosage: TOTAL DAILY DOSE: 15 ML
     Dates: start: 20081027, end: 20081027

REACTIONS (10)
  - ARTHRALGIA [None]
  - PEAU D'ORANGE [None]
  - PRURITUS [None]
  - RASH MACULAR [None]
  - RASH PAPULAR [None]
  - RENAL FAILURE [None]
  - RENAL TUBULAR DISORDER [None]
  - SKIN BURNING SENSATION [None]
  - SKIN DISORDER [None]
  - SKIN TIGHTNESS [None]
